FAERS Safety Report 11384377 (Version 1)
Quarter: 2015Q3

REPORT INFORMATION
  Report Type: Spontaneous
  Country: US (occurrence: US)
  Receive Date: 20150811
  Receipt Date: 20150811
  Transmission Date: 20151125
  Serious: No
  Sender: FDA-Public Use
  Company Number: US-ELI_LILLY_AND_COMPANY-US201101001097

PATIENT
  Age: 48 Year
  Sex: Male
  Weight: 104.31 kg

DRUGS (1)
  1. CIALIS [Suspect]
     Active Substance: TADALAFIL
     Indication: ERECTILE DYSFUNCTION
     Dosage: 5 MG, AS NEEDED
     Dates: start: 20101211

REACTIONS (4)
  - Headache [Unknown]
  - Medication error [Unknown]
  - Mood swings [Unknown]
  - Back pain [Unknown]

NARRATIVE: CASE EVENT DATE: 20101211
